FAERS Safety Report 8841666 (Version 1)
Quarter: 2012Q4

REPORT INFORMATION
  Report Type: 
  Country: DE (occurrence: DE)
  Receive Date: 20121015
  Receipt Date: 20121015
  Transmission Date: 20130627
  Serious: Yes (Death, Other)
  Sender: FDA-Public Use
  Company Number: DE-PFIZER INC-9836896

PATIENT
  Age: 48 Year
  Sex: Female
  Weight: 98 kg

DRUGS (62)
  1. DIFLUCAN [Suspect]
     Indication: ILL-DEFINED DISORDER
     Dosage: 100-200 mg/day
     Route: 042
     Dates: start: 19970830, end: 19970916
  2. DIFLUCAN [Suspect]
     Dosage: 200 mg, 1x/day
     Route: 048
     Dates: start: 19970917, end: 19970918
  3. TAZOBAC [Suspect]
     Indication: INFECTION PROPHYLAXIS
     Dosage: 4500 mg, 3x/day
     Route: 042
     Dates: start: 19970826, end: 19970905
  4. NOVAMINSULFON [Suspect]
     Indication: PAIN
     Dosage: 2 g, daily
     Route: 042
     Dates: start: 19970910, end: 19970911
  5. FORTUM [Suspect]
     Indication: BACTERIAL INFECTION
     Dosage: 2 g, 1x/day
     Route: 042
     Dates: start: 19970910, end: 19970918
  6. DOLANTIN [Concomitant]
     Route: 042
     Dates: start: 19970822, end: 19970822
  7. LAMISIL [Concomitant]
     Dosage: UNK
     Route: 061
     Dates: start: 19970822, end: 19970823
  8. PANTHENOL EYE OINTMENT [Concomitant]
     Route: 061
     Dates: end: 19970823
  9. ZYLORIC [Concomitant]
     Dosage: UNK
     Route: 048
     Dates: start: 19970822, end: 19970825
  10. CIPROBAY [Concomitant]
     Dosage: UNK
     Route: 048
     Dates: start: 19970822, end: 19970826
  11. CIPROBAY [Concomitant]
     Dosage: UNK
     Route: 042
     Dates: start: 19970909, end: 19970917
  12. FRISIUM [Concomitant]
     Route: 048
     Dates: end: 19970827
  13. URSOFALK [Concomitant]
     Route: 048
     Dates: end: 19970914
  14. POTASSIUM CHLORIDE [Concomitant]
     Route: 042
     Dates: end: 19970918
  15. ZOVIRAX [Concomitant]
     Dosage: UNK
     Route: 048
     Dates: start: 19970822, end: 19970919
  16. ZOVIRAX [Concomitant]
     Dosage: UNK
     Route: 042
     Dates: start: 19970919, end: 19970919
  17. HEPARIN [Concomitant]
     Route: 014
  18. AMPHOTERICIN B [Concomitant]
     Dosage: UNK
     Route: 042
     Dates: start: 19970822, end: 19970830
  19. AMPHOTERICIN B INHALANT [Concomitant]
     Dosage: UNK
     Route: 055
     Dates: start: 19970822, end: 19970919
  20. ISOPTIN [Concomitant]
     Dosage: UNK
     Route: 048
     Dates: start: 19970822, end: 19970910
  21. LASIX [Concomitant]
     Dosage: UNK
     Route: 042
     Dates: start: 19970822, end: 19970919
  22. SODIUM CHLORIDE [Concomitant]
     Route: 042
  23. DIPEPTAMIN [Concomitant]
     Route: 042
  24. GLUCOSE 5% [Concomitant]
     Route: 042
  25. AMPHO-MORONAL SUSPENSION [Concomitant]
     Route: 048
  26. AMPHO-MORONAL LOZENGES [Concomitant]
     Dosage: UNK
     Route: 048
     Dates: start: 19970826, end: 19970829
  27. PRAXITEN [Concomitant]
     Indication: SLEEP DISORDER
     Dosage: UNK
     Route: 048
     Dates: start: 19970822, end: 19970919
  28. EUTHYROX [Concomitant]
     Route: 048
  29. ENDOXAN [Concomitant]
     Route: 042
     Dates: start: 19970823, end: 19970824
  30. KEVATRIL [Concomitant]
     Route: 042
     Dates: start: 19970823, end: 19970825
  31. UROMITEXAN [Concomitant]
     Route: 042
     Dates: start: 19970823, end: 19970826
  32. MG SO4 [Concomitant]
     Route: 042
     Dates: start: 19970824
  33. VOMEX A [Concomitant]
     Route: 042
     Dates: start: 19970824
  34. AMINOMIX [Concomitant]
     Route: 042
     Dates: start: 19970825, end: 19970830
  35. PEPPERMINT OIL [Concomitant]
     Route: 061
     Dates: start: 19970825, end: 19970909
  36. CYCLOSPORIN [Concomitant]
     Route: 042
     Dates: start: 19970825
  37. STEM CELL ADMINISTRATION [Concomitant]
     Route: 042
     Dates: start: 19970826, end: 19970826
  38. ATOSIL [Concomitant]
     Route: 048
     Dates: start: 19970826, end: 19970827
  39. ALL OTHER THERAPEUTIC PRODUCTS [Concomitant]
     Dosage: UNK
     Route: 042
     Dates: start: 19970827, end: 19970905
  40. ATOSIL [Concomitant]
     Route: 042
     Dates: start: 19970827, end: 19970903
  41. CELLCEPT [Concomitant]
     Route: 048
     Dates: start: 19970827
  42. VANCOMYCIN [Concomitant]
     Dosage: UNK
     Route: 042
     Dates: start: 19970828, end: 19970916
  43. VANCOMYCIN [Concomitant]
     Dosage: UNK
     Route: 048
     Dates: start: 19970907, end: 19970910
  44. DILAUDID [Concomitant]
     Route: 042
     Dates: start: 19970831, end: 19970906
  45. ZOFRAN [Concomitant]
     Route: 042
     Dates: start: 19970831, end: 19970901
  46. NEPHROTECT [Concomitant]
     Route: 042
     Dates: start: 19970831, end: 19970903
  47. THROMBOCYTE CONCENTRATE [Concomitant]
     Route: 042
     Dates: start: 19970831, end: 19970905
  48. ERYTHROCYTE CONCENTRATE [Concomitant]
     Route: 042
     Dates: start: 19970831, end: 19970913
  49. ALL OTHER THERAPEUTIC PRODUCTS [Concomitant]
     Dosage: UNK
     Route: 042
     Dates: start: 19970831, end: 19970914
  50. ALL OTHER THERAPEUTIC PRODUCTS [Concomitant]
     Dosage: UNK
     Route: 042
     Dates: start: 19970831, end: 19970918
  51. DOPAMIN [Concomitant]
     Dosage: UNK
     Route: 042
     Dates: start: 19970901, end: 19970919
  52. METOCLOPRAMIDE [Concomitant]
     Route: 042
     Dates: start: 19970901, end: 19970906
  53. LIPOFUNDIN [Concomitant]
     Route: 042
     Dates: start: 19970901, end: 19970915
  54. CALCIUMGLUCONAT [Concomitant]
     Route: 042
     Dates: start: 19970901
  55. PEPDUL [Concomitant]
     Route: 042
     Dates: start: 19970902, end: 19970904
  56. KONAKION [Concomitant]
     Route: 042
     Dates: start: 19970902, end: 19970911
  57. ALT-INSULIN [Concomitant]
     Dosage: UNK
     Route: 042
     Dates: start: 19970902, end: 19970919
  58. VERGENTAN [Concomitant]
     Route: 042
     Dates: start: 19970903, end: 19970917
  59. AMINOPLASMAL 10% [Concomitant]
     Route: 042
     Dates: start: 19970904, end: 19970911
  60. DIAZEPAM [Concomitant]
     Route: 048
     Dates: start: 19970904, end: 19970917
  61. MERONEM [Concomitant]
     Dosage: UNK
     Dates: start: 19970905, end: 19970909
  62. PARACETAMOL [Concomitant]
     Dosage: UNK
     Route: 048
     Dates: start: 19970905, end: 19970910

REACTIONS (5)
  - Cardiovascular disorder [Fatal]
  - Renal failure [Fatal]
  - Fungal sepsis [Fatal]
  - Toxic epidermal necrolysis [Unknown]
  - Gastroenteritis [Unknown]
